FAERS Safety Report 21203398 (Version 5)
Quarter: 2022Q3

REPORT INFORMATION
  Report Type: Spontaneous
  Country: US (occurrence: US)
  Receive Date: 20220811
  Receipt Date: 20220929
  Transmission Date: 20221027
  Serious: Yes (Hospitalization, Other)
  Sender: FDA-Public Use
  Company Number: US-PFIZER INC-PV202200040965

PATIENT
  Age: 90 Year
  Sex: Female

DRUGS (2)
  1. IBRANCE [Suspect]
     Active Substance: PALBOCICLIB
     Dosage: 100 MG
     Dates: start: 20220801, end: 20220822
  2. IBRANCE [Suspect]
     Active Substance: PALBOCICLIB
     Dosage: UNK
     Dates: start: 20220905

REACTIONS (11)
  - Pulmonary oedema [Unknown]
  - Cardiac failure congestive [Unknown]
  - Renal impairment [Unknown]
  - Nausea [Recovered/Resolved]
  - Abdominal discomfort [Recovered/Resolved]
  - Diarrhoea [Recovered/Resolved]
  - Constipation [Recovered/Resolved]
  - Fatigue [Recovered/Resolved]
  - Vomiting [Unknown]
  - COVID-19 [Unknown]
  - Full blood count decreased [Unknown]

NARRATIVE: CASE EVENT DATE: 20220801
